FAERS Safety Report 6584374-1 (Version None)
Quarter: 2010Q1

REPORT INFORMATION
  Report Type: 
  Country: None (occurrence: None)
  Receive Date: 20100216
  Receipt Date: 20100127
  Transmission Date: 20100710
  Serious: No
  Sender: FDA-Public Use
  Company Number: US-ABBOTT-10P-163-0622510-00

PATIENT
  Sex: Male
  Weight: 90.8 kg

DRUGS (6)
  1. SIMCOR [Suspect]
     Indication: BLOOD CHOLESTEROL INCREASED
     Dates: start: 20090101
  2. ASPIRIN [Concomitant]
     Indication: DRUG USE FOR UNKNOWN INDICATION
     Dosage: AT NIGHT
  3. BLOOD PRESSURE MEDICATION [Concomitant]
     Indication: BLOOD PRESSURE
  4. INSULIN [Concomitant]
     Indication: DRUG USE FOR UNKNOWN INDICATION
  5. PAIN MEDICATION [Concomitant]
     Indication: PAIN
  6. HEART MEDICATION [Concomitant]
     Indication: CARDIAC DISORDER

REACTIONS (3)
  - CHEST PAIN [None]
  - FEELING HOT [None]
  - FLUSHING [None]
